FAERS Safety Report 6945344-4 (Version None)
Quarter: 2010Q3

REPORT INFORMATION
  Report Type: 
  Country: None (occurrence: None)
  Receive Date: 20100827
  Receipt Date: 20100818
  Transmission Date: 20110219
  Serious: Yes (Other)
  Sender: FDA-Public Use
  Company Number: US-PFIZER INC-2010091425

PATIENT
  Sex: Female
  Weight: 86 kg

DRUGS (16)
  1. CHANTIX [Suspect]
     Indication: SMOKING CESSATION THERAPY
     Dosage: 0.5 MG, 1X/DAY
     Route: 048
     Dates: start: 20100706
  2. CHANTIX [Suspect]
     Dosage: 1 MG, 2X/DAY
     Route: 048
     Dates: start: 20100701
  3. ZETIA [Concomitant]
     Dosage: 10 MG, UNK
  4. WARFARIN [Concomitant]
     Dosage: 5 MG, UNK
  5. HYZAAR [Concomitant]
     Dosage: 100 MG, UNK
  6. CARDIZEM [Concomitant]
     Dosage: 30 MG, UNK
  7. PLAVIX [Concomitant]
     Dosage: 75 MG, UNK
  8. SITAGLIPTIN [Concomitant]
     Dosage: 60 MG, UNK
  9. METOPROLOL [Concomitant]
     Dosage: 50 MG, UNK
  10. ALLEGRA [Concomitant]
     Dosage: 60 MG, UNK
  11. XANAX [Concomitant]
     Dosage: 0.5 MG, AS NEEDED
  12. ORETIC [Concomitant]
     Dosage: 25 MG, AS NEEDED
  13. METHIMAZOLE [Concomitant]
     Dosage: 10 MG, UNK
  14. CYMBALTA [Concomitant]
     Dosage: 20 MG, UNK
  15. WARFARIN [Concomitant]
     Dosage: 5 MG, UNK
  16. LOSARTAN [Concomitant]
     Dosage: UNK

REACTIONS (6)
  - ANXIETY [None]
  - CONFUSIONAL STATE [None]
  - DEPRESSION [None]
  - DISTURBANCE IN ATTENTION [None]
  - NERVOUSNESS [None]
  - WITHDRAWAL SYNDROME [None]
